FAERS Safety Report 5228355-9 (Version None)
Quarter: 2007Q1

REPORT INFORMATION
  Report Type: 
  Country: None (occurrence: None)
  Receive Date: 20070131
  Receipt Date: 20070131
  Transmission Date: 20070707
  Serious: Yes (Other)
  Sender: FDA-Public Use
  Company Number: None

PATIENT
  Sex: Female

DRUGS (2)
  1. FLUOXETINE [Suspect]
     Indication: DEPRESSION
  2. DETROL LA [Suspect]
     Indication: INCONTINENCE

REACTIONS (3)
  - DRY EYE [None]
  - DRY MOUTH [None]
  - MUSCLE SPASMS [None]
